FAERS Safety Report 16663196 (Version 2)
Quarter: 2019Q3

REPORT INFORMATION
  Report Type: Report from Study
  Country: GB (occurrence: GB)
  Receive Date: 20190802
  Receipt Date: 20190812
  Transmission Date: 20191004
  Serious: Yes (Other)
  Sender: FDA-Public Use
  Company Number: GB-MYLANLABS-2019M1071675

PATIENT
  Sex: Female

DRUGS (3)
  1. LEVETIRACETAM. [Suspect]
     Active Substance: LEVETIRACETAM
     Indication: SEIZURE
     Dosage: UNK UNK, QD (1500 A DAY)
  2. LAMICTAL [Concomitant]
     Active Substance: LAMOTRIGINE
     Indication: PRODUCT USED FOR UNKNOWN INDICATION
     Dosage: 500 MILLIGRAM, QD
  3. VITAMIN B12                        /00091801/ [Concomitant]
     Indication: FATIGUE
     Dosage: UNK

REACTIONS (6)
  - Fatigue [Unknown]
  - Exposure during pregnancy [Recovered/Resolved]
  - Unevaluable event [Unknown]
  - Stress [Unknown]
  - Premature delivery [Recovered/Resolved]
  - Anxiety [Unknown]
